FAERS Safety Report 10515217 (Version 3)
Quarter: 2015Q1

REPORT INFORMATION
  Report Type: Spontaneous
  Country: IT (occurrence: IT)
  Receive Date: 20141014
  Receipt Date: 20150123
  Transmission Date: 20150720
  Serious: Yes (Hospitalization)
  Sender: FDA-Public Use
  Company Number: IT-ROCHE-1472052

PATIENT
  Age: 23 Year
  Sex: Female

DRUGS (3)
  1. PANTOPRAZOLE [Suspect]
     Active Substance: PANTOPRAZOLE SODIUM
     Indication: INTENTIONAL SELF-INJURY
     Route: 048
     Dates: start: 20140811, end: 20140811
  2. DIAZEPAM. [Suspect]
     Active Substance: DIAZEPAM
     Indication: DEPRESSION
     Route: 048
     Dates: start: 20140811, end: 20140811
  3. PAROXETINE [Suspect]
     Active Substance: PAROXETINE\PAROXETINE HYDROCHLORIDE
     Indication: DEPRESSION
     Route: 048
     Dates: start: 20140811, end: 20140811

REACTIONS (6)
  - Drug abuse [Unknown]
  - Somnolence [Recovered/Resolved]
  - Intentional self-injury [Unknown]
  - Hypotension [Recovered/Resolved]
  - Bradyphrenia [Recovered/Resolved]
  - Bradykinesia [Recovered/Resolved]

NARRATIVE: CASE EVENT DATE: 20140811
